FAERS Safety Report 24578901 (Version 1)
Quarter: 2024Q4

REPORT INFORMATION
  Report Type: Spontaneous
  Country: US (occurrence: US)
  Receive Date: 20241105
  Receipt Date: 20241105
  Transmission Date: 20250114
  Serious: Yes (Other)
  Sender: GLAXOSMITHKLINE
  Company Number: US-GSKCCFUS-Case-02140428_AE-118047

PATIENT

DRUGS (1)
  1. JEMPERLI [Suspect]
     Active Substance: DOSTARLIMAB\DOSTARLIMAB-GXLY
     Indication: Product used for unknown indication
     Dosage: UNK

REACTIONS (3)
  - Surgery [Unknown]
  - Rash [Unknown]
  - Intentional dose omission [Unknown]
